FAERS Safety Report 19376024 (Version 1)
Quarter: 2021Q2

REPORT INFORMATION
  Report Type: Spontaneous
  Country: US (occurrence: US)
  Receive Date: 20210604
  Receipt Date: 20210604
  Transmission Date: 20210717
  Serious: No
  Sender: FDA-Public Use
  Company Number: US-BRAINTREE LABORATORIES, INC.-2021BTE00059

PATIENT
  Age: 67 Year
  Sex: Female
  Weight: 54.43 kg

DRUGS (2)
  1. MIRALAX [Concomitant]
     Active Substance: POLYETHYLENE GLYCOL 3350
  2. PEG?3350, SODIUM CHLORIDE, SODIUM BICARBONATE AND POTASSIUM CHLORIDE [Suspect]
     Active Substance: POLYETHYLENE GLYCOL 3350\POTASSIUM CHLORIDE\SODIUM BICARBONATE\SODIUM CHLORIDE
     Indication: CONSTIPATION
     Dosage: 1 L EVERY 4?6 WEEKS; AT TIMES REPEATED ON SUBSEQUENT DAYS
     Route: 048

REACTIONS (5)
  - Blood pressure fluctuation [Unknown]
  - Off label use [Unknown]
  - Dizziness [Unknown]
  - Electrolyte imbalance [Unknown]
  - Abdominal pain upper [Not Recovered/Not Resolved]

NARRATIVE: CASE EVENT DATE: 20210127
